FAERS Safety Report 7830553-2 (Version None)
Quarter: 2011Q4

REPORT INFORMATION
  Report Type: 
  Country: None (occurrence: None)
  Receive Date: 20111021
  Receipt Date: 20111019
  Transmission Date: 20120403
  Serious: No
  Sender: FDA-Public Use
  Company Number: US-TEVA-303828USA

PATIENT
  Sex: Female
  Weight: 54.48 kg

DRUGS (2)
  1. PLAN B ONE-STEP [Suspect]
     Indication: POST COITAL CONTRACEPTION
     Dosage: 1.5 MILLIGRAM;
     Route: 048
     Dates: start: 20111001, end: 20111001
  2. SEASONIQUE [Concomitant]
     Indication: CONTRACEPTION
     Route: 048

REACTIONS (5)
  - PYREXIA [None]
  - NAUSEA [None]
  - PAIN [None]
  - CHILLS [None]
  - PELVIC PAIN [None]
